FAERS Safety Report 23678582 (Version 2)
Quarter: 2024Q2

REPORT INFORMATION
  Report Type: Spontaneous
  Country: KR (occurrence: KR)
  Receive Date: 20240327
  Receipt Date: 20240404
  Transmission Date: 20240715
  Serious: Yes (Hospitalization, Other)
  Sender: FDA-Public Use
  Company Number: KR-ABBVIE-5691106

PATIENT
  Weight: 61 kg

DRUGS (7)
  1. RINVOQ [Suspect]
     Active Substance: UPADACITINIB
     Indication: Dermatitis atopic
     Dosage: FORM STRENGTH: 15 MILLIGRAM
     Route: 048
     Dates: start: 20230719, end: 20240320
  2. ALLERGINON [Concomitant]
     Indication: Eczema
     Dosage: 10 MG
     Route: 048
     Dates: start: 20240219, end: 20240320
  3. DOXEPIN [Concomitant]
     Active Substance: DOXEPIN
     Indication: Eczema
     Dosage: FREQUENCY TEXT: PRN(PRO RE NATA)
     Route: 048
     Dates: start: 20240219, end: 20240320
  4. DIFLUCORTOLONE VALERATE\ISOCONAZOLE NITRATE [Concomitant]
     Active Substance: DIFLUCORTOLONE VALERATE\ISOCONAZOLE NITRATE
     Indication: Eczema
     Route: 061
     Dates: start: 20240219, end: 20240320
  5. GASTER [Concomitant]
     Active Substance: FAMOTIDINE
     Indication: Eczema
     Dosage: FORM STRENGTH UNITS: 20 MILLIGRAM? FREQUENCY TEXT: PRN(PRO RE NATA)
     Route: 048
     Dates: start: 20240219, end: 20240320
  6. TWOLION [Concomitant]
     Indication: Eczema
     Dosage: FORM STRENGTH: 10 MILLIGRAM? FREQUENCY TEXT: PRN(PRO RE NATA)
     Route: 048
     Dates: start: 20240219, end: 20240320
  7. PROSOL [Concomitant]
     Active Substance: ALANINE\ARGININE\ASPARTIC ACID\GLUTAMIC ACID\GLYCINE\HISTIDINE\ISOLEUCINE\LEUCINE\LYSINE ACETATE\MET
     Indication: Eczema
     Route: 061
     Dates: start: 20240219, end: 20240320

REACTIONS (1)
  - Aortic aneurysm [Recovering/Resolving]

NARRATIVE: CASE EVENT DATE: 20240320
